FAERS Safety Report 5179162-7 (Version None)
Quarter: 2006Q4

REPORT INFORMATION
  Report Type: 
  Country: None (occurrence: None)
  Receive Date: 20061219
  Receipt Date: 20061121
  Transmission Date: 20070319
  Serious: Yes (Disabling)
  Sender: FDA-Public Use
  Company Number: JP-BRISTOL-MYERS SQUIBB COMPANY-13596457

PATIENT
  Age: 87 Year
  Sex: Male

DRUGS (7)
  1. GATIFLO TABS [Suspect]
     Indication: PNEUMONIA
     Route: 048
     Dates: start: 20061108, end: 20061108
  2. GATIFLO TABS [Suspect]
     Route: 048
     Dates: start: 20061109, end: 20061112
  3. RESPLEN [Suspect]
     Indication: PNEUMONIA
     Route: 048
     Dates: start: 20061108, end: 20061112
  4. HOKUNALIN [Suspect]
     Indication: PNEUMONIA
     Route: 062
     Dates: start: 20061108, end: 20061112
  5. NICERGOLINE [Concomitant]
     Route: 048
     Dates: start: 20060411
  6. MARZULENE-S [Concomitant]
     Route: 048
     Dates: start: 19960924
  7. MAGNESIUM OXIDE [Concomitant]
     Route: 048
     Dates: start: 20060411

REACTIONS (1)
  - RHABDOMYOLYSIS [None]
